FAERS Safety Report 9995090 (Version 1)
Quarter: 2014Q1

REPORT INFORMATION
  Report Type: Spontaneous
  Country: US (occurrence: None)
  Receive Date: 20140218
  Receipt Date: 20140218
  Transmission Date: 20141002
  Serious: No
  Sender: FDA-Public Use
  Company Number: 1000050870

PATIENT
  Age: 82 Year
  Sex: Female

DRUGS (5)
  1. VIIBRYD [Suspect]
     Indication: MAJOR DEPRESSION
     Route: 048
     Dates: start: 201307, end: 2013
  2. VIIBRYD [Suspect]
     Indication: MAJOR DEPRESSION
     Route: 048
     Dates: start: 2013, end: 20131103
  3. NAMENDA XR [Concomitant]
  4. CLONAZEPAM (CLONAZEPAM) (CLONAZEPAM) [Concomitant]
  5. AMANTADINE (AMANTADINE) (AMANTADINE) [Concomitant]

REACTIONS (6)
  - Hallucination, auditory [None]
  - Hallucination [None]
  - Paranoia [None]
  - Fatigue [None]
  - Disturbance in attention [None]
  - Nightmare [None]
